FAERS Safety Report 9778480 (Version 3)
Quarter: 2014Q1

REPORT INFORMATION
  Report Type: Spontaneous
  Country: JP (occurrence: JP)
  Receive Date: 20131223
  Receipt Date: 20140204
  Transmission Date: 20141002
  Serious: Yes (Other)
  Sender: FDA-Public Use
  Company Number: JP-NAPPMUNDI-GBR-2013-0016634

PATIENT
  Age: 77 Year
  Sex: Male

DRUGS (1)
  1. OXYCODONE HCL CONTROLLED RELEASE TABLETS [Suspect]
     Indication: CANCER PAIN
     Dosage: 30 MG, DAILY
     Route: 048
     Dates: start: 201311, end: 201311

REACTIONS (3)
  - Delirium [Recovered/Resolved]
  - Dizziness [Recovered/Resolved]
  - Nausea [Recovered/Resolved]
